FAERS Safety Report 18051227 (Version 1)
Quarter: 2020Q3

REPORT INFORMATION
  Report Type: Spontaneous
  Country: CN (occurrence: CN)
  Receive Date: 20200721
  Receipt Date: 20200721
  Transmission Date: 20201103
  Serious: Yes (Other)
  Sender: FDA-Public Use
  Company Number: CN-ROCHE-2642468

PATIENT
  Age: 55 Year
  Sex: Female

DRUGS (24)
  1. AVASTIN [Suspect]
     Active Substance: BEVACIZUMAB
     Indication: METASTASES TO LYMPH NODES
  2. AVASTIN [Suspect]
     Active Substance: BEVACIZUMAB
     Indication: METASTASES TO PLEURA
  3. CARBOPLATIN. [Concomitant]
     Active Substance: CARBOPLATIN
     Indication: LUNG ADENOCARCINOMA
     Dosage: 6 CYCLES FIRST?LINE TREATMENT
     Dates: start: 20180704, end: 20181212
  4. APATINIB [Concomitant]
     Active Substance: APATINIB
     Indication: LUNG ADENOCARCINOMA
     Dosage: SECOND?LINE TREATMENT
     Dates: start: 20181216, end: 20190116
  5. AVASTIN [Suspect]
     Active Substance: BEVACIZUMAB
     Indication: LUNG ADENOCARCINOMA
     Dosage: 6 CYCLES FIRST?LINE TREATMENT
     Route: 065
     Dates: start: 20180704, end: 20181212
  6. CARBOPLATIN. [Concomitant]
     Active Substance: CARBOPLATIN
     Indication: METASTASES TO PLEURA
  7. NIVOLUMAB [Concomitant]
     Active Substance: NIVOLUMAB
     Indication: METASTASES TO PLEURA
  8. PEMETREXED. [Concomitant]
     Active Substance: PEMETREXED
     Indication: METASTASES TO CENTRAL NERVOUS SYSTEM
  9. CARBOPLATIN. [Concomitant]
     Active Substance: CARBOPLATIN
     Indication: METASTASES TO LYMPH NODES
  10. CARBOPLATIN. [Concomitant]
     Active Substance: CARBOPLATIN
     Indication: METASTASES TO CENTRAL NERVOUS SYSTEM
  11. PEMETREXED. [Concomitant]
     Active Substance: PEMETREXED
     Indication: METASTASES TO LYMPH NODES
  12. TEGAFUR GIMERACIL AND OTERACIL POTASSIUM [Concomitant]
     Active Substance: GIMERACIL\OTERACIL\TEGAFUR
     Indication: METASTASES TO LYMPH NODES
  13. TEGAFUR GIMERACIL AND OTERACIL POTASSIUM [Concomitant]
     Active Substance: GIMERACIL\OTERACIL\TEGAFUR
     Indication: METASTASES TO PLEURA
  14. NIVOLUMAB [Concomitant]
     Active Substance: NIVOLUMAB
     Indication: LUNG ADENOCARCINOMA
     Dosage: THIRD?LINE TREATMENT
     Dates: start: 20190203, end: 20190711
  15. NIVOLUMAB [Concomitant]
     Active Substance: NIVOLUMAB
     Indication: METASTASES TO CENTRAL NERVOUS SYSTEM
  16. AVASTIN [Suspect]
     Active Substance: BEVACIZUMAB
     Indication: METASTASES TO CENTRAL NERVOUS SYSTEM
  17. TEGAFUR GIMERACIL AND OTERACIL POTASSIUM [Concomitant]
     Active Substance: GIMERACIL\OTERACIL\TEGAFUR
     Indication: METASTASES TO CENTRAL NERVOUS SYSTEM
  18. TEGAFUR GIMERACIL AND OTERACIL POTASSIUM [Concomitant]
     Active Substance: GIMERACIL\OTERACIL\TEGAFUR
     Indication: LUNG ADENOCARCINOMA
     Dosage: SECOND?LINE TREATMENT
     Dates: start: 20181216, end: 20190116
  19. APATINIB [Concomitant]
     Active Substance: APATINIB
     Indication: METASTASES TO PLEURA
  20. NIVOLUMAB [Concomitant]
     Active Substance: NIVOLUMAB
     Indication: METASTASES TO LYMPH NODES
  21. PEMETREXED. [Concomitant]
     Active Substance: PEMETREXED
     Indication: LUNG ADENOCARCINOMA
     Dosage: 6 CYCLES FIRST?LINE TREATMENT
     Dates: start: 20180704, end: 20181212
  22. PEMETREXED. [Concomitant]
     Active Substance: PEMETREXED
     Indication: METASTASES TO PLEURA
  23. APATINIB [Concomitant]
     Active Substance: APATINIB
     Indication: METASTASES TO LYMPH NODES
  24. APATINIB [Concomitant]
     Active Substance: APATINIB
     Indication: METASTASES TO CENTRAL NERVOUS SYSTEM

REACTIONS (3)
  - Immune-mediated thyroiditis [Unknown]
  - Thyroiditis subacute [Unknown]
  - Type 1 diabetes mellitus [Unknown]
